FAERS Safety Report 16096798 (Version 1)
Quarter: 2019Q1

REPORT INFORMATION
  Report Type: Spontaneous
  Country: NO (occurrence: NO)
  Receive Date: 20190320
  Receipt Date: 20190320
  Transmission Date: 20190418
  Serious: Yes (Hospitalization, Other)
  Sender: FDA-Public Use
  Company Number: NO-MYLANLABS-2019M1024878

PATIENT
  Age: 59 Year
  Sex: Male

DRUGS (13)
  1. CEFOTAXIME [Concomitant]
     Active Substance: CEFOTAXIME SODIUM
     Dosage: 1 G, Q8H
     Route: 042
  2. BLEOMYCIN SULFATE [Suspect]
     Active Substance: BLEOMYCIN SULFATE
     Indication: LYMPHADENOPATHY
  3. ETOPOSIDE. [Concomitant]
     Active Substance: ETOPOSIDE
     Indication: RECURRENT CANCER
  4. CISPLATIN. [Concomitant]
     Active Substance: CISPLATIN
     Indication: SEMINOMA
     Dosage: UNK
  5. ENOXAPARIN [Concomitant]
     Active Substance: ENOXAPARIN
     Dosage: 1 MILLIGRAM/KILOGRAM, BID (1 MG/KG, Q12H)
  6. BLEOMYCIN SULFATE [Suspect]
     Active Substance: BLEOMYCIN SULFATE
     Indication: SEMINOMA
  7. ETOPOSIDE. [Concomitant]
     Active Substance: ETOPOSIDE
     Indication: LYMPHADENOPATHY
  8. CISPLATIN. [Concomitant]
     Active Substance: CISPLATIN
     Indication: LYMPHADENOPATHY
  9. IMATINIB. [Suspect]
     Active Substance: IMATINIB MESYLATE
     Indication: TESTICULAR SEMINOMA (PURE) STAGE I
     Dosage: 300 MG, QD
     Route: 065
  10. CISPLATIN. [Concomitant]
     Active Substance: CISPLATIN
     Indication: RECURRENT CANCER
  11. CEFOTAXIME [Concomitant]
     Active Substance: CEFOTAXIME SODIUM
     Dosage: 2 G, Q12H
     Route: 042
  12. BLEOMYCIN SULFATE [Suspect]
     Active Substance: BLEOMYCIN SULFATE
     Indication: RECURRENT CANCER
     Dosage: UNK, AFTER INITIATION OF THE SECOND BEP CYCLE
  13. ETOPOSIDE. [Concomitant]
     Active Substance: ETOPOSIDE
     Indication: SEMINOMA
     Dosage: UNK

REACTIONS (2)
  - Pneumonitis [Recovering/Resolving]
  - Therapeutic response decreased [Unknown]
